FAERS Safety Report 10747903 (Version 4)
Quarter: 2015Q2

REPORT INFORMATION
  Report Type: Spontaneous
  Country: JP (occurrence: JP)
  Receive Date: 20150129
  Receipt Date: 20150428
  Transmission Date: 20150821
  Serious: Yes (Other)
  Sender: FDA-Public Use
  Company Number: JP-MUNDIPHARMA DS AND PHARMACOVIGILANCE-GBR-2015-0025246

PATIENT
  Age: 69 Year
  Sex: Male

DRUGS (16)
  1. OXYCONTIN [Suspect]
     Active Substance: OXYCODONE HYDROCHLORIDE
     Dosage: 20 MG, DAILY
     Route: 048
     Dates: start: 20150112, end: 20150114
  2. NOVAMIN                            /00013301/ [Concomitant]
     Active Substance: PROCHLORPERAZINE MALEATE
     Indication: CANCER PAIN
     Dosage: 15 MG, DAILY
     Route: 048
     Dates: start: 20150111, end: 20150123
  3. MAGLAX [Concomitant]
     Active Substance: MAGNESIUM OXIDE
     Indication: CANCER PAIN
     Dosage: 990 MG, DAILY
     Dates: start: 20150111
  4. TAKEPRON [Concomitant]
     Active Substance: LANSOPRAZOLE
     Indication: URETERIC CANCER
     Dosage: 15 MG, DAILY
     Route: 048
     Dates: start: 20150111
  5. CISPLATIN. [Concomitant]
     Active Substance: CISPLATIN
     Indication: URETERIC CANCER
  6. OXYCONTIN [Suspect]
     Active Substance: OXYCODONE HYDROCHLORIDE
     Dosage: 10 MG DAILY
     Route: 048
     Dates: start: 20150111, end: 20150111
  7. OXYCODONE HCL IR POWDER 0.5% [Suspect]
     Active Substance: OXYCODONE HYDROCHLORIDE
     Dosage: 5 MG, TWICE (RESCUE DOSE)
     Route: 048
     Dates: start: 20150113, end: 20150113
  8. OXYCODONE HCL IR POWDER 0.5% [Suspect]
     Active Substance: OXYCODONE HYDROCHLORIDE
     Dosage: 2.5 MG, 4 TIMES (RESCUE DOSE)
     Route: 048
     Dates: start: 20150111, end: 20150111
  9. METHOTREXATE [Concomitant]
     Active Substance: METHOTREXATE
     Indication: URETERIC CANCER
  10. OXYCONTIN [Suspect]
     Active Substance: OXYCODONE HYDROCHLORIDE
     Indication: CANCER PAIN
     Dosage: 30 MG, DAILY
     Route: 048
     Dates: start: 20140115, end: 20150119
  11. OXYCODONE HCL IR POWDER 0.5% [Suspect]
     Active Substance: OXYCODONE HYDROCHLORIDE
     Indication: CANCER PAIN
     Dosage: 5 MG, NINE TIMES (RESCUE DOSE)
     Route: 048
     Dates: start: 20150115, end: 20150119
  12. OXYCODONE HCL IR POWDER 0.5% [Suspect]
     Active Substance: OXYCODONE HYDROCHLORIDE
     Dosage: 2.5 MG, 5 TIMES
     Route: 048
     Dates: start: 20150112, end: 20150112
  13. DOXORUBICIN HYDROCHLORIDE. [Concomitant]
     Active Substance: DOXORUBICIN HYDROCHLORIDE
     Indication: URETERIC CANCER
  14. OXYCODONE HCL IR POWDER 0.5% [Suspect]
     Active Substance: OXYCODONE HYDROCHLORIDE
     Dosage: 5 MG, ONCE (RESCUE DOSE)
     Route: 048
     Dates: start: 20150112, end: 20150112
  15. OXYCODONE HCL IR POWDER 0.5% [Suspect]
     Active Substance: OXYCODONE HYDROCHLORIDE
     Dosage: 5 MG, 5 TIMES (RESCUE DOSE)
     Route: 048
     Dates: start: 20150114, end: 20150114
  16. VINBLASTIN [Concomitant]
     Active Substance: VINBLASTINE
     Indication: URETERIC CANCER

REACTIONS (1)
  - Delirium [Recovered/Resolved]

NARRATIVE: CASE EVENT DATE: 20150116
